FAERS Safety Report 23221843 (Version 1)
Quarter: 2023Q4

REPORT INFORMATION
  Report Type: Report from Study
  Country: US (occurrence: US)
  Receive Date: 20231123
  Receipt Date: 20231123
  Transmission Date: 20240109
  Serious: Yes (Other)
  Sender: FDA-Public Use
  Company Number: US-002147023-NVSC2023US248592

PATIENT
  Age: 70 Year
  Sex: Male

DRUGS (2)
  1. LEQVIO [Suspect]
     Active Substance: INCLISIRAN SODIUM
     Indication: Product used for unknown indication
     Dosage: UNK
     Route: 058
     Dates: start: 20230121
  2. LEQVIO [Suspect]
     Active Substance: INCLISIRAN SODIUM
     Dosage: THIRD INJECTION
     Route: 058
     Dates: start: 20231106

REACTIONS (2)
  - Lower respiratory tract infection [Unknown]
  - Productive cough [Unknown]

NARRATIVE: CASE EVENT DATE: 20231106
